FAERS Safety Report 6793196-8 (Version None)
Quarter: 2010Q2

REPORT INFORMATION
  Report Type: 
  Country: None (occurrence: None)
  Receive Date: 20100624
  Receipt Date: 20090810
  Transmission Date: 20101027
  Serious: Yes (Other)
  Sender: FDA-Public Use
  Company Number: US-MYLANLABS-2009S1013421

PATIENT
  Age: 9 Year
  Sex: Female
  Weight: 36.74 kg

DRUGS (9)
  1. CLOZAPINE [Suspect]
     Indication: SCHIZOPHRENIA
     Route: 048
     Dates: start: 20071220, end: 20090721
  2. CLOZAPINE [Suspect]
     Indication: BIPOLAR DISORDER
     Route: 048
     Dates: start: 20071220, end: 20090721
  3. CLOZAPINE [Suspect]
     Route: 048
     Dates: start: 20071220, end: 20090721
  4. CLOZAPINE [Suspect]
     Route: 048
     Dates: start: 20071220, end: 20090721
  5. ABILIFY [Concomitant]
  6. ATENOLOL [Concomitant]
  7. COGENTIN [Concomitant]
  8. METFORMIN HCL [Concomitant]
  9. LITHIUM [Concomitant]

REACTIONS (2)
  - GRANULOCYTOPENIA [None]
  - LEUKOPENIA [None]
